FAERS Safety Report 7830472-1 (Version None)
Quarter: 2011Q4

REPORT INFORMATION
  Report Type: 
  Country: None (occurrence: None)
  Receive Date: 20111021
  Receipt Date: 20111012
  Transmission Date: 20120403
  Serious: Yes (Other)
  Sender: FDA-Public Use
  Company Number: US-JNJFOC-20111005704

PATIENT
  Age: 5 Decade
  Sex: Male

DRUGS (4)
  1. COGENTIN [Concomitant]
     Indication: CONVULSION
     Route: 065
  2. INVEGA SUSTENNA [Suspect]
     Indication: PRODUCT USED FOR UNKNOWN INDICATION
     Route: 058
     Dates: start: 20101001
  3. ATIVAN [Concomitant]
     Indication: ANXIETY
     Route: 065
  4. LAMICTAL [Concomitant]
     Indication: CONVULSION
     Route: 065

REACTIONS (2)
  - EPILEPSY [None]
  - INCORRECT ROUTE OF DRUG ADMINISTRATION [None]
